FAERS Safety Report 16173317 (Version 2)
Quarter: 2019Q2

REPORT INFORMATION
  Report Type: Spontaneous
  Country: DE (occurrence: DE)
  Receive Date: 20190409
  Receipt Date: 20190417
  Transmission Date: 20190711
  Serious: Yes (Hospitalization)
  Sender: FDA-Public Use
  Company Number: DE-TORRENT-00013686

PATIENT
  Age: 2 Year
  Sex: Male

DRUGS (2)
  1. LEVETIRACETAM SAFT [Suspect]
     Active Substance: LEVETIRACETAM
     Indication: EPILEPSY
     Dosage: DAILY DOSE: 16 ML MILLILITRE(S) EVERY DAYS
     Route: 048
  2. OXCARBAZEPINE. [Concomitant]
     Active Substance: OXCARBAZEPINE
     Indication: PRODUCT USED FOR UNKNOWN INDICATION
     Dosage: GRADUAL INCREASE OF DOSE OF?OXCARBAZEPINE

REACTIONS (4)
  - Underdose [Unknown]
  - Product administration error [Unknown]
  - Treatment noncompliance [Unknown]
  - Seizure [Unknown]

NARRATIVE: CASE EVENT DATE: 20180727
